FAERS Safety Report 18853183 (Version 1)
Quarter: 2021Q1

REPORT INFORMATION
  Report Type: Spontaneous
  Country: AU (occurrence: AU)
  Receive Date: 20210205
  Receipt Date: 20210205
  Transmission Date: 20210420
  Serious: Yes (Other)
  Sender: FDA-Public Use
  Company Number: AU-MYLANLABS-2021M1007683

PATIENT
  Age: 30 Year
  Sex: Female

DRUGS (8)
  1. INSULIN GLARGINE [Suspect]
     Active Substance: INSULIN GLARGINE
     Indication: TYPE 1 DIABETES MELLITUS
     Dosage: UNK
     Route: 030
  2. HYDROCORTISONE. [Suspect]
     Active Substance: HYDROCORTISONE
     Indication: TYPE III IMMUNE COMPLEX MEDIATED REACTION
     Dosage: UNK
     Route: 065
  3. AZATHIOPRINE. [Suspect]
     Active Substance: AZATHIOPRINE
     Indication: TYPE III IMMUNE COMPLEX MEDIATED REACTION
     Dosage: UNK
     Route: 065
  4. NAFAMOSTAT [Suspect]
     Active Substance: NAFAMOSTAT
     Indication: TYPE III IMMUNE COMPLEX MEDIATED REACTION
     Dosage: UNK
     Route: 065
  5. PREDNISOLONE. [Suspect]
     Active Substance: PREDNISOLONE
     Indication: TYPE III IMMUNE COMPLEX MEDIATED REACTION
     Dosage: UNK
     Route: 048
  6. INSULIN GLARGINE [Suspect]
     Active Substance: INSULIN GLARGINE
     Indication: TYPE 1 DIABETES MELLITUS
     Dosage: UNK
     Route: 058
  7. INSULIN ASPART [Suspect]
     Active Substance: INSULIN ASPART
     Indication: TYPE 1 DIABETES MELLITUS
     Dosage: RECEIVED OVER 2 DAYS
     Route: 058
  8. BETAMETHASONE. [Suspect]
     Active Substance: BETAMETHASONE
     Indication: TYPE III IMMUNE COMPLEX MEDIATED REACTION
     Dosage: UNK
     Route: 061

REACTIONS (5)
  - Type III immune complex mediated reaction [Recovering/Resolving]
  - Drug ineffective [Unknown]
  - Administration site pain [Recovering/Resolving]
  - Myalgia [Recovering/Resolving]
  - Infusion related hypersensitivity reaction [Recovering/Resolving]
